FAERS Safety Report 20104398 (Version 1)
Quarter: 2021Q4

REPORT INFORMATION
  Report Type: Spontaneous
  Country: US (occurrence: US)
  Receive Date: 20211123
  Receipt Date: 20211123
  Transmission Date: 20220303
  Serious: No
  Sender: FDA-Public Use
  Company Number: US-AMNEAL PHARMACEUTICALS-2021-AMRX-03867

PATIENT
  Sex: Male

DRUGS (3)
  1. ISOTRETINOIN [Suspect]
     Active Substance: ISOTRETINOIN
     Indication: Acne
     Dosage: 30 MILLIGRAM, DAILY
     Route: 048
     Dates: start: 20210412, end: 20210510
  2. ISOTRETINOIN [Suspect]
     Active Substance: ISOTRETINOIN
     Dosage: 60 MILLIGRAM, DAILY (2 CAPS DAILY)
     Route: 048
     Dates: start: 20210510, end: 2021
  3. ISOTRETINOIN [Suspect]
     Active Substance: ISOTRETINOIN
     Dosage: 30 MILLIGRAM, DAILY
     Route: 048
     Dates: start: 2021, end: 2021

REACTIONS (3)
  - Neutrophil count decreased [Recovering/Resolving]
  - Xerosis [Unknown]
  - Cheilitis [Unknown]

NARRATIVE: CASE EVENT DATE: 20210101
